FAERS Safety Report 8906294 (Version 1)
Quarter: 2012Q4

REPORT INFORMATION
  Report Type: Spontaneous
  Country: GB (occurrence: None)
  Receive Date: 20121107
  Receipt Date: 20121107
  Transmission Date: 20130627
  Serious: No
  Sender: FDA-Public Use
  Company Number: AUR-APL-2012-04617

PATIENT
  Age: 68 Year
  Sex: Female
  Weight: 76 kg

DRUGS (6)
  1. GABAPENTIN [Suspect]
     Indication: DRUG USE FOR UNKNOWN INDICATION
     Dates: start: 20120914, end: 20120928
  2. GABAPENTIN [Suspect]
     Indication: DRUG USE FOR UNKNOWN INDICATION
     Route: 048
  3. SIMVASTATIN (SIMVASTATIN) [Concomitant]
  4. SOTALOL (SOTALOL) [Concomitant]
  5. TOLTERODINE (TOLTERODINE) [Concomitant]
  6. WARFARIN (WARFARIN) [Concomitant]

REACTIONS (3)
  - Dizziness [None]
  - Depressed mood [None]
  - Affective disorder [None]
